FAERS Safety Report 16970245 (Version 1)
Quarter: 2019Q4

REPORT INFORMATION
  Report Type: Spontaneous
  Country: US (occurrence: US)
  Receive Date: 20190911
  Receipt Date: 20190911
  Transmission Date: 20200122
  Serious: Yes (Disabling, Other)
  Sender: FDA-Public Use
  Company Number: None

PATIENT
  Age: 70 Year
  Sex: Male
  Weight: 78.47 kg

DRUGS (4)
  1. ASPIRIN 81MG [Concomitant]
     Active Substance: ASPIRIN
  2. FISH OIL 1200MG [Concomitant]
  3. PRAVASTATIN 20 MG [Concomitant]
     Active Substance: PRAVASTATIN
  4. ROSUVASTATIN 10 MG [Suspect]
     Active Substance: ROSUVASTATIN
     Indication: BLOOD CHOLESTEROL INCREASED
     Dosage: ?          QUANTITY:1 DF DOSAGE FORM;?
     Route: 048
     Dates: start: 20190101, end: 20190801

REACTIONS (2)
  - Tendon rupture [None]
  - Product substitution issue [None]

NARRATIVE: CASE EVENT DATE: 20180510
